FAERS Safety Report 5225872-2 (Version None)
Quarter: 2007Q1

REPORT INFORMATION
  Report Type: 
  Country: None (occurrence: None)
  Receive Date: 20070130
  Receipt Date: 20070130
  Transmission Date: 20070707
  Serious: No
  Sender: FDA-Public Use
  Company Number: None

PATIENT
  Age: 49 Year
  Sex: Male

DRUGS (2)
  1. TYSABRI [Suspect]
     Indication: MULTIPLE SCLEROSIS
     Dosage: 300MG  Q MONTH  IV
     Route: 042
     Dates: start: 20060915, end: 20061226
  2. TYSABRI [Suspect]

REACTIONS (7)
  - ANTIBODY TEST POSITIVE [None]
  - BACK PAIN [None]
  - CHEST DISCOMFORT [None]
  - DYSPNOEA [None]
  - INFUSION RELATED REACTION [None]
  - TRISMUS [None]
  - URTICARIA [None]
